FAERS Safety Report 5013556-5 (Version None)
Quarter: 2006Q2

REPORT INFORMATION
  Report Type: 
  Country: None (occurrence: None)
  Receive Date: 20060525
  Receipt Date: 20060504
  Transmission Date: 20061013
  Serious: Yes (Death, Hospitalization)
  Sender: FDA-Public Use
  Company Number: US200605001201

PATIENT
  Age: 70 Year
  Sex: Male

DRUGS (3)
  1. CIALIS [Suspect]
     Indication: ERECTILE DYSFUNCTION
     Dosage: 20 MG, UNK
     Route: 065
     Dates: start: 20060413
  2. NORVASC [Concomitant]
  3. LASIX (FUROSEMIDE, FUROSEMIDE SODIUM) [Concomitant]

REACTIONS (10)
  - BLISTER [None]
  - BLOOD GLUCOSE DECREASED [None]
  - BLOOD SODIUM INCREASED [None]
  - CONSTIPATION [None]
  - DIFFICULTY IN WALKING [None]
  - FLUID RETENTION [None]
  - HAEMATOMA [None]
  - HEPATIC ENZYME ABNORMAL [None]
  - LOCAL SWELLING [None]
  - NAUSEA [None]
